FAERS Safety Report 7476691-8 (Version None)
Quarter: 2011Q2

REPORT INFORMATION
  Report Type: 
  Country: None (occurrence: None)
  Receive Date: 20110510
  Receipt Date: 20110510
  Transmission Date: 20111010
  Serious: Yes (Hospitalization)
  Sender: FDA-Public Use
  Company Number: None

PATIENT
  Age: 71 Year
  Sex: Female

DRUGS (1)
  1. IBANDRONATE SODIUM [Suspect]
     Indication: OSTEOPOROSIS
     Dosage: IBANDRONATE 150MG Q MONTH PO (047)
     Route: 048
     Dates: start: 20070101

REACTIONS (3)
  - FEMUR FRACTURE [None]
  - STRESS FRACTURE [None]
  - BONE DISORDER [None]
